FAERS Safety Report 9369577 (Version 1)
Quarter: 2013Q2

REPORT INFORMATION
  Report Type: Spontaneous
  Country: US (occurrence: US)
  Receive Date: 20130626
  Receipt Date: 20130626
  Transmission Date: 20140414
  Serious: No
  Sender: FDA-Public Use
  Company Number: US-MYLANLABS-2012S1011164

PATIENT
  Sex: Female

DRUGS (2)
  1. PERFOROMIST (FORMOTEROL FUMARATE) INHALATION SOLUTION [Suspect]
     Route: 055
     Dates: end: 2012
  2. COUMADIN [Concomitant]

REACTIONS (1)
  - Epistaxis [Recovered/Resolved]
